FAERS Safety Report 8968889 (Version 6)
Quarter: 2013Q2

REPORT INFORMATION
  Report Type: Report from Study
  Country: GR (occurrence: GR)
  Receive Date: 20121218
  Receipt Date: 20130402
  Transmission Date: 20140414
  Serious: Yes (Life-Threatening, Hospitalization, Other)
  Sender: FDA-Public Use
  Company Number: GR-PFIZER INC-2012313108

PATIENT
  Age: 56 Year
  Sex: Female
  Weight: 62 kg

DRUGS (9)
  1. TEMSIROLIMUS [Suspect]
     Indication: PANCREATIC CARCINOMA METASTATIC
     Dosage: 25 MG, WEEKLY
     Route: 042
     Dates: start: 20121206, end: 20121206
  2. GEMZAR [Suspect]
     Indication: PANCREATIC CARCINOMA METASTATIC
     Dosage: 1600 MG, CYCLIC (EVERY 2 WEEKS)
     Route: 042
     Dates: start: 20121206, end: 20121206
  3. SODIUM CHLORIDE [Concomitant]
     Indication: PREMEDICATION
     Dosage: 100 ML, SINGLE
     Route: 042
     Dates: start: 20121206, end: 20121206
  4. DEXAMETHASONE [Concomitant]
     Indication: PREMEDICATION
     Dosage: 4 MG, SINGLE
     Route: 042
     Dates: start: 20121206, end: 20121206
  5. RANITIDINE HYDROCHLORIDE [Concomitant]
     Indication: PREMEDICATION
     Dosage: 50 MG, SINGLE
     Route: 042
     Dates: start: 20121206, end: 20121206
  6. FENISTIL [Concomitant]
     Indication: PREMEDICATION
     Dosage: 4 MG, SINGLE
     Route: 042
     Dates: start: 20121206, end: 20121206
  7. VISIPAQUE [Concomitant]
     Indication: ANGIOGRAM PULMONARY
     Dosage: 270 MG, SINGLE
     Route: 042
     Dates: start: 20121206, end: 20121206
  8. TRAMAL [Concomitant]
     Indication: ANALGESIC THERAPY
     Dosage: 100 ML, SINGLE
     Route: 042
     Dates: start: 20121206, end: 20121206
  9. TRAMAL [Concomitant]
     Indication: PAIN

REACTIONS (2)
  - Febrile neutropenia [Recovered/Resolved]
  - Pulmonary embolism [Not Recovered/Not Resolved]
